FAERS Safety Report 8063637-7 (Version None)
Quarter: 2012Q1

REPORT INFORMATION
  Report Type: 
  Country: None (occurrence: None)
  Receive Date: 20120123
  Receipt Date: 20120118
  Transmission Date: 20120608
  Serious: No
  Sender: FDA-Public Use
  Company Number: US-PFIZER INC-2012015208

PATIENT
  Sex: Male
  Weight: 74.83 kg

DRUGS (1)
  1. SUTENT [Suspect]
     Indication: LEUKAEMIA RECURRENT
     Dosage: 50 MG,DAILY
     Dates: start: 20110901, end: 20111201

REACTIONS (2)
  - WHITE BLOOD CELL COUNT DECREASED [None]
  - PLATELET COUNT DECREASED [None]
